FAERS Safety Report 14278455 (Version 3)
Quarter: 2019Q1

REPORT INFORMATION
  Report Type: Spontaneous
  Country: US (occurrence: US)
  Receive Date: 20171211
  Receipt Date: 20190114
  Transmission Date: 20190417
  Serious: Yes (Other)
  Sender: FDA-Public Use
  Company Number: US-OTSUKA-2017_009797

PATIENT
  Age: 45 Year
  Sex: Female

DRUGS (3)
  1. ABILIFY [Suspect]
     Active Substance: ARIPIPRAZOLE
     Indication: BIPOLAR DISORDER
     Dosage: 5 MG, QD
     Route: 065
     Dates: start: 200904, end: 201612
  2. ARIPIPRAZOLE. [Concomitant]
     Active Substance: ARIPIPRAZOLE
     Indication: PRODUCT USED FOR UNKNOWN INDICATION
     Dosage: UNK
     Route: 065
     Dates: start: 201610, end: 201612
  3. REXULTI [Suspect]
     Active Substance: BREXPIPRAZOLE
     Indication: PRODUCT USED FOR UNKNOWN INDICATION
     Dosage: UNK
     Route: 065

REACTIONS (38)
  - Apathy [Unknown]
  - Libido decreased [Unknown]
  - Irritability [Unknown]
  - Pain [Unknown]
  - Musculoskeletal stiffness [Unknown]
  - Bankruptcy [Unknown]
  - Cerebral disorder [Unknown]
  - Contusion [Unknown]
  - Tremor [Unknown]
  - Decreased appetite [Unknown]
  - Gambling disorder [Not Recovered/Not Resolved]
  - Dysphagia [Unknown]
  - Suicide attempt [Recovered/Resolved]
  - Emotional distress [Unknown]
  - Disturbance in attention [Unknown]
  - Temperature intolerance [Unknown]
  - Tearfulness [Unknown]
  - Cerebral disorder [Unknown]
  - Compulsive shopping [Recovered/Resolved]
  - Fatigue [Unknown]
  - Anxiety [Unknown]
  - Panic attack [Unknown]
  - Personal relationship issue [Unknown]
  - Economic problem [Unknown]
  - Drug intolerance [Unknown]
  - Homeless [Unknown]
  - Anhedonia [Unknown]
  - Impulsive behaviour [Recovered/Resolved]
  - Chest pain [Unknown]
  - Dry mouth [Unknown]
  - Dizziness [Unknown]
  - Headache [Unknown]
  - Vision blurred [Unknown]
  - Prescribed underdose [Unknown]
  - Suicidal ideation [Recovered/Resolved]
  - Tachyphrenia [Unknown]
  - Obsessive-compulsive disorder [Recovered/Resolved]
  - Asthenia [Unknown]

NARRATIVE: CASE EVENT DATE: 200907
